FAERS Safety Report 9608561 (Version 3)
Quarter: 2013Q4

REPORT INFORMATION
  Report Type: Spontaneous
  Country: IT (occurrence: IT)
  Receive Date: 20131009
  Receipt Date: 20131213
  Transmission Date: 20140711
  Serious: Yes (Hospitalization)
  Sender: FDA-Public Use
  Company Number: IT-PFIZER INC-2013287682

PATIENT
  Age: 83 Year
  Sex: Male

DRUGS (10)
  1. NORVASC [Suspect]
     Dosage: 5 MG, 1X/DAY
     Route: 048
     Dates: start: 20130101, end: 20130918
  2. TRIATEC [Suspect]
     Indication: HYPERTENSION
     Dosage: 5 MG, 1X/DAY
     Route: 048
     Dates: start: 20060101, end: 20130918
  3. METOPROLOL TARTRATE [Suspect]
     Dosage: 100 MG, 1X/DAY
     Route: 048
     Dates: start: 20090701, end: 20130918
  4. METFORMIN [Concomitant]
     Dosage: 500 MG, UNK
     Route: 048
  5. PARIET [Concomitant]
     Dosage: UNK
     Route: 065
  6. PROSCAR [Concomitant]
     Dosage: UNK
     Route: 065
  7. TAPAZOLE [Concomitant]
     Dosage: UNK
     Route: 065
  8. CARDIRENE [Concomitant]
     Dosage: UNK
     Route: 065
  9. SINVACOR [Concomitant]
     Dosage: UNK
     Route: 065
  10. XATRAL [Concomitant]
     Dosage: UNK
     Route: 065

REACTIONS (2)
  - Syncope [Recovering/Resolving]
  - Cerebral hypoperfusion [Recovering/Resolving]
